FAERS Safety Report 7661271-1 (Version None)
Quarter: 2011Q3

REPORT INFORMATION
  Report Type: 
  Country: None (occurrence: None)
  Receive Date: 20110805
  Receipt Date: 20100930
  Transmission Date: 20111222
  Serious: No
  Sender: FDA-Public Use
  Company Number: US-ABBOTT-10P-163-0675602-00

PATIENT
  Sex: Female
  Weight: 46.762 kg

DRUGS (3)
  1. ZETIA [Concomitant]
     Indication: BLOOD CHOLESTEROL
     Dates: start: 20090101
  2. BENICAR [Concomitant]
     Indication: HYPERTENSION
     Dates: start: 20080101
  3. NIASPAN [Suspect]
     Indication: BLOOD CHOLESTEROL
     Dates: start: 20100927

REACTIONS (1)
  - FLUSHING [None]
